FAERS Safety Report 5835710-2 (Version None)
Quarter: 2008Q3

REPORT INFORMATION
  Report Type: 
  Country: None (occurrence: None)
  Receive Date: 20080722
  Receipt Date: 20071008
  Transmission Date: 20090109
  Serious: Yes (Other)
  Sender: FDA-Public Use
  Company Number: 2007BI021600

PATIENT
  Sex: Female

DRUGS (1)
  1. AVONEX [Suspect]
     Dosage: ;IM
     Route: 030
     Dates: start: 19970106, end: 20060901

REACTIONS (1)
  - NO ADVERSE EVENT [None]
